FAERS Safety Report 18707616 (Version 2)
Quarter: 2021Q1

REPORT INFORMATION
  Report Type: Report from Study
  Country: DE (occurrence: DE)
  Receive Date: 20210106
  Receipt Date: 20210113
  Transmission Date: 20210419
  Serious: Yes (Death, Other)
  Sender: FDA-Public Use
  Company Number: NVSC2020DE273314

PATIENT
  Sex: Female

DRUGS (9)
  1. KISQALI [Suspect]
     Active Substance: RIBOCICLIB
     Indication: BREAST CANCER METASTATIC
     Dosage: 200 MG, QD (SCHEMA 21 DAYS INTAKE, 7 DAYS PAUSE)
     Route: 048
     Dates: start: 20190611, end: 20190709
  2. CARBOPLATIN. [Suspect]
     Active Substance: CARBOPLATIN
     Indication: BREAST CANCER METASTATIC
     Dosage: 400 MG, Q2W
     Route: 042
     Dates: start: 20200406, end: 20200608
  3. AFINITOR [Concomitant]
     Active Substance: EVEROLIMUS
     Dosage: 10 MG, QD (DAILY DOSE)
     Route: 048
     Dates: start: 20200829
  4. FULVESTRANT. [Suspect]
     Active Substance: FULVESTRANT
     Indication: BREAST CANCER METASTATIC
     Dosage: 500 MG, QD (OTHER DAY1 , 14, 28 AND THEN EVERY 28 DAYS)
     Route: 042
     Dates: start: 20190611, end: 20200330
  5. AFINITOR [Concomitant]
     Active Substance: EVEROLIMUS
     Indication: BREAST CANCER METASTATIC
     Dosage: 2.5 MG, QD (DAILY DOSE)
     Route: 048
     Dates: start: 20200618, end: 20200702
  6. GEMCITABINE. [Suspect]
     Active Substance: GEMCITABINE
     Indication: BREAST CANCER METASTATIC
     Dosage: 1700 MG, Q2W
     Route: 042
     Dates: start: 20200406, end: 20200602
  7. AFINITOR [Concomitant]
     Active Substance: EVEROLIMUS
     Dosage: 5 MG, QD (DAILY DOSE
     Route: 048
     Dates: start: 20200703, end: 20200806
  8. KISQALI [Suspect]
     Active Substance: RIBOCICLIB
     Dosage: 400 MG, QD (SCHEMA 21 DAYS INTAKE, 7 DAYS PAUSE)
     Route: 048
     Dates: start: 20190710, end: 20200330
  9. AFINITOR [Concomitant]
     Active Substance: EVEROLIMUS
     Dosage: 7.5 MG, QD(DAILY DOSE
     Route: 048
     Dates: start: 20200807, end: 20200828

REACTIONS (2)
  - Death [Fatal]
  - Polyneuropathy [Recovered/Resolved]

NARRATIVE: CASE EVENT DATE: 20200504
